FAERS Safety Report 7746340-X (Version None)
Quarter: 2011Q3

REPORT INFORMATION
  Report Type: 
  Country: None (occurrence: None)
  Receive Date: 20110913
  Receipt Date: 20110902
  Transmission Date: 20111222
  Serious: Yes (Other)
  Sender: FDA-Public Use
  Company Number: DE-ROCHE-801359

PATIENT
  Sex: Female

DRUGS (1)
  1. AVASTIN [Suspect]
     Indication: BRONCHIAL CARCINOMA
     Dosage: MAINTENANCE TREATMENT
     Route: 065

REACTIONS (1)
  - EOSINOPHILIA [None]
